FAERS Safety Report 7675638-9 (Version None)
Quarter: 2011Q3

REPORT INFORMATION
  Report Type: 
  Country: None (occurrence: None)
  Receive Date: 20110810
  Receipt Date: 20110805
  Transmission Date: 20111222
  Serious: Yes (Hospitalization, Other)
  Sender: FDA-Public Use
  Company Number: US-PFIZER INC-2011115328

PATIENT
  Sex: Female

DRUGS (3)
  1. CHANTIX [Suspect]
     Dosage: STARTER PACKS 2 AND CONTINUING MONTH PACKS 4
     Dates: start: 20071101, end: 20071201
  2. CHANTIX [Suspect]
     Indication: SMOKING CESSATION THERAPY
     Dosage: STARTER PACKS 2 AND CONTINUING MONTH PACKS 4
     Dates: start: 20070801, end: 20070901
  3. CHANTIX [Suspect]
     Dosage: STARTER PACKS 2 AND CONTINUING MONTH PACKS 4
     Dates: start: 20080201, end: 20080301

REACTIONS (7)
  - SUICIDE ATTEMPT [None]
  - MOOD SWINGS [None]
  - ANXIETY [None]
  - DEPRESSION [None]
  - NIGHTMARE [None]
  - AGGRESSION [None]
  - INTENTIONAL OVERDOSE [None]
